FAERS Safety Report 8282837-4 (Version None)
Quarter: 2012Q2

REPORT INFORMATION
  Report Type: 
  Country: None (occurrence: None)
  Receive Date: 20120413
  Receipt Date: 20120402
  Transmission Date: 20120825
  Serious: Yes (Other)
  Sender: FDA-Public Use
  Company Number: BR-ROCHE-1059295

PATIENT
  Weight: 6.3 kg

DRUGS (5)
  1. PEGINTERFERON ALFA-2A [Suspect]
     Indication: HEPATITIS C
     Route: 058
     Dates: start: 20070101, end: 20080101
  2. RESPIDON [Concomitant]
     Indication: BIPOLAR DISORDER
     Route: 048
  3. MORPHINE [Concomitant]
     Indication: PAIN
     Route: 042
  4. IBUPROFEN [Concomitant]
     Indication: PAIN
  5. RIBAVIRIN [Concomitant]
     Indication: HEPATITIS C

REACTIONS (2)
  - HEPATITIS C [None]
  - MATERNAL EXPOSURE TIMING UNSPECIFIED [None]
